FAERS Safety Report 20006917 (Version 3)
Quarter: 2021Q4

REPORT INFORMATION
  Report Type: Other
  Country: GB (occurrence: None)
  Receive Date: 20211028
  Receipt Date: 20211126
  Transmission Date: 20220303
  Serious: Yes (Hospitalization, Other)
  Sender: FDA-Public Use
  Company Number: GB-ROCHE-2940355

PATIENT
  Sex: Female

DRUGS (7)
  1. TOCILIZUMAB [Suspect]
     Active Substance: TOCILIZUMAB
     Indication: Giant cell arteritis
     Route: 058
     Dates: start: 202106
  2. OMEPRAZOLE [Concomitant]
     Active Substance: OMEPRAZOLE
  3. LEFLUNOMIDE [Concomitant]
     Active Substance: LEFLUNOMIDE
  4. AMITRIPTYLINE [Concomitant]
     Active Substance: AMITRIPTYLINE
  5. PREDNISOLONE [Concomitant]
     Active Substance: PREDNISOLONE
  6. TRAMADOL [Concomitant]
     Active Substance: TRAMADOL
  7. VITAMIN C [Concomitant]
     Active Substance: ASCORBIC ACID

REACTIONS (11)
  - Pain [Unknown]
  - Chest pain [Unknown]
  - Back pain [Unknown]
  - Loss of consciousness [Unknown]
  - Arthralgia [Unknown]
  - Dizziness [Unknown]
  - Headache [Unknown]
  - Respiratory disorder [Unknown]
  - Pain in jaw [Unknown]
  - Movement disorder [Unknown]
  - Peripheral swelling [Unknown]
